FAERS Safety Report 8966350 (Version 1)
Quarter: 2012Q4

REPORT INFORMATION
  Report Type: 
  Country: GB (occurrence: GB)
  Receive Date: 20121217
  Receipt Date: 20121217
  Transmission Date: 20130627
  Serious: Yes (Hospitalization)
  Sender: FDA-Public Use
  Company Number: PHHO2012GB017912

PATIENT
  Age: 32 Year
  Sex: Male
  Weight: 87.75 kg

DRUGS (2)
  1. FTY [Suspect]
     Indication: MULTIPLE SCLEROSIS
     Dosage: 0.5 mg, QD
     Route: 048
     Dates: start: 20110324
  2. CO CODAMOL [Concomitant]
     Indication: PAIN
     Dosage: prn
     Dates: start: 20121201, end: 20121212

REACTIONS (1)
  - Abdominal pain lower [Recovering/Resolving]
